FAERS Safety Report 16778346 (Version 2)
Quarter: 2019Q4

REPORT INFORMATION
  Report Type: Spontaneous
  Country: US (occurrence: US)
  Receive Date: 20190906
  Receipt Date: 20191018
  Transmission Date: 20200122
  Serious: No
  Sender: FDA-Public Use
  Company Number: US-DRREDDYS-USA/USA/19/0113828

PATIENT
  Age: 57 Year
  Sex: Female

DRUGS (3)
  1. DOCETAXEL. [Suspect]
     Active Substance: DOCETAXEL
     Indication: SKIN ANGIOSARCOMA
     Dosage: SEVERAL DOSES
  2. PACLITAXEL. [Suspect]
     Active Substance: PACLITAXEL
     Indication: SKIN ANGIOSARCOMA
     Dosage: SEVERAL DOSES
  3. GEMCITABINE. [Suspect]
     Active Substance: GEMCITABINE
     Indication: SKIN ANGIOSARCOMA
     Dosage: SEVERAL DOSES

REACTIONS (9)
  - Pain [Unknown]
  - Arthralgia [Unknown]
  - Fatigue [Unknown]
  - Myalgia [Unknown]
  - Swelling [Unknown]
  - Mucosal inflammation [Unknown]
  - Quality of life decreased [Unknown]
  - Decreased appetite [Unknown]
  - Nausea [Unknown]
